FAERS Safety Report 6031646-5 (Version None)
Quarter: 2008Q4

REPORT INFORMATION
  Report Type: 
  Country: None (occurrence: None)
  Receive Date: 20081229
  Receipt Date: 20080312
  Transmission Date: 20090506
  Serious: Yes (Hospitalization)
  Sender: FDA-Public Use
  Company Number: WAES 0803USA01966

PATIENT
  Age: 40 Year
  Sex: Male

DRUGS (1)
  1. ZETIA [Suspect]
     Dosage: UNK/UNK/PO
     Route: 048
     Dates: start: 20080305, end: 20080306

REACTIONS (1)
  - CHOLECYSTITIS [None]
